FAERS Safety Report 11595088 (Version 4)
Quarter: 2015Q4

REPORT INFORMATION
  Report Type: Spontaneous
  Country: IT (occurrence: IT)
  Receive Date: 20151006
  Receipt Date: 20151028
  Transmission Date: 20160304
  Serious: Yes (Other)
  Sender: FDA-Public Use
  Company Number: IT-ROCHE-1641738

PATIENT
  Age: 43 Year
  Sex: Female

DRUGS (1)
  1. VALIUM [Suspect]
     Active Substance: DIAZEPAM
     Indication: TACHYARRHYTHMIA
     Dosage: 5 MG/ML ORAL DROPS, SOLUTION- 20 ML BOTTLE
     Route: 048
     Dates: start: 20150816, end: 20150816

REACTIONS (3)
  - Overdose [Unknown]
  - Sopor [Recovering/Resolving]
  - Vomiting [Recovering/Resolving]

NARRATIVE: CASE EVENT DATE: 20150817
